FAERS Safety Report 23616725 (Version 1)
Quarter: 2024Q1

REPORT INFORMATION
  Report Type: Spontaneous
  Country: ID (occurrence: ID)
  Receive Date: 20240311
  Receipt Date: 20240311
  Transmission Date: 20240410
  Serious: Yes (Other)
  Sender: FDA-Public Use
  Company Number: DEX 2024-0011(0)

PATIENT
  Age: 56 Year
  Sex: Female

DRUGS (2)
  1. DEXMEDETOMIDINE HYDROCHLORIDE [Suspect]
     Active Substance: DEXMEDETOMIDINE HYDROCHLORIDE
     Indication: Analgesic therapy
     Dosage: 15 ML, AS ADJUVANT (0.5 UG/KG)
     Route: 008
  2. BUPIVACAINE [Suspect]
     Active Substance: BUPIVACAINE
     Indication: Anaesthesia
     Dosage: 0.25 PERCENT
     Route: 008

REACTIONS (4)
  - Heart rate abnormal [Unknown]
  - Blood pressure fluctuation [Unknown]
  - Nausea [Unknown]
  - Off label use [Unknown]
